FAERS Safety Report 8419226 (Version 4)
Quarter: 2012Q4

REPORT INFORMATION
  Report Type: 
  Country: US (occurrence: US)
  Receive Date: 20120221
  Receipt Date: 20121127
  Transmission Date: 20130627
  Serious: Yes (Other)
  Sender: FDA-Public Use
  Company Number: US-PERRIGO-12US001274

PATIENT
  Age: 42 Year
  Sex: Female
  Weight: 102.4 kg

DRUGS (5)
  1. IBUPROFEN 200MG-DIPHENHYDRAMINE CITRATE 38 MG 8K7 [Suspect]
     Indication: MUSCLE SPASMS
     Dosage: 1 caplet, once
     Route: 048
     Dates: start: 20120208, end: 20120208
  2. KEPPRA [Concomitant]
     Indication: CONVULSION
     Dosage: 1000 mg, bid
     Route: 065
     Dates: start: 2003
  3. LYRICA [Concomitant]
     Indication: PAIN IN EXTREMITY
     Dosage: 50 mg, bid
     Route: 065
     Dates: start: 2011
  4. SIMVASTATIN [Concomitant]
     Indication: BLOOD CHOLESTEROL INCREASED
     Dosage: 50 mg, qd
     Route: 065
     Dates: start: 2011
  5. METFORMIN [Concomitant]
     Indication: DIABETES MELLITUS
     Dosage: 500 mg, bid
     Route: 065
     Dates: start: 2009

REACTIONS (8)
  - Respiratory arrest [Recovered/Resolved]
  - Unresponsive to stimuli [Recovered/Resolved]
  - Increased upper airway secretion [Recovered/Resolved]
  - Dyspnoea [Recovering/Resolving]
  - Hypersensitivity [Recovered/Resolved]
  - Pruritus [Recovered/Resolved]
  - Abdominal pain [Recovered/Resolved]
  - Flushing [Recovered/Resolved]
